FAERS Safety Report 6410757-6 (Version None)
Quarter: 2009Q4

REPORT INFORMATION
  Report Type: 
  Country: None (occurrence: None)
  Receive Date: 20091020
  Receipt Date: 20091020
  Transmission Date: 20100525
  Serious: Yes (Other)
  Sender: FDA-Public Use
  Company Number: None

PATIENT
  Sex: Male
  Weight: 83.3 kg

DRUGS (5)
  1. ABRAXANE [Suspect]
     Indication: OESOPHAGEAL CARCINOMA
     Dosage: 200 MG D1, D8, D15/CYCLE 042
     Dates: start: 20090821, end: 20091001
  2. VANDETANIB [Suspect]
     Indication: OESOPHAGEAL CARCINOMA
     Dosage: 200 MG QD X 28 DAYS 047
     Dates: start: 20090821, end: 20091007
  3. ACTOS [Concomitant]
  4. ALLOPURINOL [Concomitant]
  5. LOVENOX [Concomitant]

REACTIONS (4)
  - CONDITION AGGRAVATED [None]
  - MALIGNANT NEOPLASM PROGRESSION [None]
  - OESOPHAGEAL CANCER METASTATIC [None]
  - PULMONARY EMBOLISM [None]
